FAERS Safety Report 24971313 (Version 1)
Quarter: 2025Q1

REPORT INFORMATION
  Report Type: Spontaneous
  Country: US (occurrence: None)
  Receive Date: 20250213
  Receipt Date: 20250213
  Transmission Date: 20250409
  Serious: Yes (Hospitalization)
  Sender: FDA-CTU
  Company Number: None

PATIENT
  Age: 69 Year
  Sex: Female
  Weight: 60 kg

DRUGS (1)
  1. EMPAGLIFLOZIN [Suspect]
     Active Substance: EMPAGLIFLOZIN

REACTIONS (3)
  - Euglycaemic diabetic ketoacidosis [None]
  - Hypophagia [None]
  - Therapy interrupted [None]

NARRATIVE: CASE EVENT DATE: 20250120
